FAERS Safety Report 23586738 (Version 1)
Quarter: 2024Q1

REPORT INFORMATION
  Report Type: Spontaneous
  Country: US (occurrence: US)
  Receive Date: 20240301
  Receipt Date: 20240301
  Transmission Date: 20240410
  Serious: No
  Sender: FDA-Public Use
  Company Number: US-PFIZER INC-202400054454

PATIENT
  Age: 65 Year
  Sex: Female

DRUGS (11)
  1. XELJANZ XR [Suspect]
     Active Substance: TOFACITINIB CITRATE
     Dosage: 11 MG
  2. VITAMIN D NOS [Concomitant]
     Active Substance: VITAMIN D NOS
  3. ALBUTEROL [Concomitant]
     Active Substance: ALBUTEROL
  4. VITAMIN C [Concomitant]
     Active Substance: ASCORBIC ACID
  5. NEURONTIN [Concomitant]
     Active Substance: GABAPENTIN
  6. ARAVA [Concomitant]
     Active Substance: LEFLUNOMIDE
  7. ZOFRAN [Concomitant]
     Active Substance: ONDANSETRON HYDROCHLORIDE
  8. TRELEGY ELLIPTA [Concomitant]
     Active Substance: FLUTICASONE FUROATE\UMECLIDINIUM BROMIDE\VILANTEROL TRIFENATATE
  9. COZAAR [Concomitant]
     Active Substance: LOSARTAN POTASSIUM
  10. PREDNISONE [Concomitant]
     Active Substance: PREDNISONE
  11. ZANAFLEX [Concomitant]
     Active Substance: TIZANIDINE HYDROCHLORIDE

REACTIONS (1)
  - Anaemia [Unknown]
